FAERS Safety Report 8303852-8 (Version None)
Quarter: 2012Q2

REPORT INFORMATION
  Report Type: 
  Country: None (occurrence: None)
  Receive Date: 20120418
  Receipt Date: 20111208
  Transmission Date: 20120825
  Serious: No
  Sender: FDA-Public Use
  Company Number: AEUSA201100337

PATIENT
  Age: 68 Year
  Sex: Female

DRUGS (1)
  1. GAMASTAN [Suspect]
     Indication: EPSTEIN-BARR VIRUS INFECTION
     Dosage: Q3W;IM
     Route: 030
     Dates: start: 20111121

REACTIONS (1)
  - DIZZINESS [None]
